FAERS Safety Report 16590367 (Version 1)
Quarter: 2019Q3

REPORT INFORMATION
  Report Type: Spontaneous
  Country: US (occurrence: US)
  Receive Date: 20190717
  Receipt Date: 20190717
  Transmission Date: 20191004
  Serious: Yes (Disabling)
  Sender: FDA-Public Use
  Company Number: None

PATIENT
  Age: 62 Year
  Sex: Female
  Weight: 54.9 kg

DRUGS (6)
  1. COQ10 [Concomitant]
     Active Substance: UBIDECARENONE
  2. GAMUNEX-C [Suspect]
     Active Substance: HUMAN IMMUNOGLOBULIN G
     Indication: IMMUNODEFICIENCY COMMON VARIABLE
     Dosage: ?          QUANTITY: 35 GRAMS;OTHER FREQUENCY:EVERY 28 DAYS;?THERAPY: ONGOING (Y)?
     Route: 042
     Dates: start: 20150915, end: 20190626
  3. ATORVASTATIN [Concomitant]
     Active Substance: ATORVASTATIN
  4. NIFEDIPINE. [Concomitant]
     Active Substance: NIFEDIPINE
  5. METHYL-FOLATE [Concomitant]
  6. WELLBUTRIN [Concomitant]
     Active Substance: BUPROPION HYDROCHLORIDE

REACTIONS (3)
  - Product supply issue [None]
  - Condition aggravated [None]
  - Nerve injury [None]

NARRATIVE: CASE EVENT DATE: 20190712
